FAERS Safety Report 8602098 (Version 5)
Quarter: 2013Q1

REPORT INFORMATION
  Report Type: Report from Study
  Country: DE (occurrence: DE)
  Receive Date: 20120607
  Receipt Date: 20130204
  Transmission Date: 20140127
  Serious: Yes (Hospitalization)
  Sender: FDA-Public Use
  Company Number: DE-BRISTOL-MYERS SQUIBB COMPANY-16659450

PATIENT
  Age: 61 Year
  Sex: Male
  Weight: 96 kg

DRUGS (6)
  1. ERBITUX SOLN FOR INF [Suspect]
     Indication: COLORECTAL CANCER METASTATIC
     Dosage: 03-3MAY12 400MG/M2,10MAY-18MAY12:250MG/M2?RECNT INF:18MAY12 22JUN12?REST8JUN12-22JUN12(STOPPED)
     Route: 042
     Dates: start: 20120503
  2. RAMIPRIL [Concomitant]
     Indication: HYPERTENSION
     Route: 048
     Dates: start: 199501
  3. CORTICOSTEROID [Concomitant]
     Indication: PREMEDICATION
     Dosage: 3MAY12-3MAY12?10MAY12-10MAY12
     Route: 048
     Dates: start: 20120503, end: 20120510
  4. 5-FLUOROURACIL [Concomitant]
     Indication: CHEMOTHERAPY
     Route: 042
     Dates: start: 20120419, end: 20120624
  5. IRINOTECAN [Concomitant]
     Indication: CHEMOTHERAPY
     Dosage: 12.8971MG/M2
     Route: 042
     Dates: start: 20120419, end: 20120624
  6. CALCIUM FOLINATE [Concomitant]
     Indication: CHEMOTHERAPY
     Dosage: 28.5714MG/M2
     Route: 042
     Dates: start: 20120419, end: 20120624

REACTIONS (1)
  - Peripheral artery thrombosis [Recovered/Resolved]
